FAERS Safety Report 6932345-5 (Version None)
Quarter: 2010Q3

REPORT INFORMATION
  Report Type: 
  Country: None (occurrence: None)
  Receive Date: 20100819
  Receipt Date: 20100812
  Transmission Date: 20110219
  Serious: Yes (Hospitalization)
  Sender: FDA-Public Use
  Company Number: US-BAYER-201030650NA

PATIENT
  Age: 33 Year
  Sex: Female

DRUGS (1)
  1. MIRENA [Suspect]
     Indication: CONTRACEPTION
     Dosage: FREQUENCY CONTINUOUS
     Route: 015
     Dates: start: 20050601, end: 20100614

REACTIONS (7)
  - AMENORRHOEA [None]
  - AMNESIA [None]
  - ANXIETY [None]
  - BRAIN OEDEMA [None]
  - CONVULSION [None]
  - DEPRESSION [None]
  - MYCOPLASMA INFECTION [None]
